FAERS Safety Report 4338965-9 (Version None)
Quarter: 2004Q2

REPORT INFORMATION
  Report Type: 
  Country: None (occurrence: None)
  Receive Date: 20040409
  Receipt Date: 20040402
  Transmission Date: 20050107
  Serious: Yes (Hospitalization)
  Sender: FDA-Public Use
  Company Number: 2004UW06682

PATIENT
  Age: 86 Year
  Sex: Male
  Weight: 90.7194 kg

DRUGS (1)
  1. CASODEX [Suspect]
     Indication: PROSTATE CANCER
     Dosage: 50 MG PO
     Route: 048
     Dates: start: 20040122, end: 20040325

REACTIONS (5)
  - CONFUSIONAL STATE [None]
  - DIZZINESS [None]
  - HAEMOGLOBIN DECREASED [None]
  - PALLOR [None]
  - ULCER HAEMORRHAGE [None]
